FAERS Safety Report 14147145 (Version 13)
Quarter: 2019Q1

REPORT INFORMATION
  Report Type: Spontaneous
  Country: US (occurrence: US)
  Receive Date: 20171031
  Receipt Date: 20190314
  Transmission Date: 20190417
  Serious: No
  Sender: FDA-Public Use
  Company Number: US-INCYTE CORPORATION-2017IN009111

PATIENT

DRUGS (24)
  1. LOSARTAN. [Concomitant]
     Active Substance: LOSARTAN
     Indication: PRODUCT USED FOR UNKNOWN INDICATION
     Dosage: UNK
     Route: 065
  2. LEVOTHYROXINE. [Concomitant]
     Active Substance: LEVOTHYROXINE
     Indication: PRODUCT USED FOR UNKNOWN INDICATION
     Dosage: UNK
     Route: 065
  3. JAKAFI [Suspect]
     Active Substance: RUXOLITINIB
     Indication: POLYCYTHAEMIA VERA
     Dosage: 10 MG, BID
     Route: 048
     Dates: start: 20170201, end: 2017
  4. JAKAFI [Suspect]
     Active Substance: RUXOLITINIB
     Dosage: 5 MG, BID
     Route: 065
     Dates: start: 20180509
  5. VITAMIN D                          /00107901/ [Concomitant]
     Active Substance: ERGOCALCIFEROL
     Indication: PRODUCT USED FOR UNKNOWN INDICATION
     Dosage: UNK
     Route: 065
  6. COZAAR [Concomitant]
     Active Substance: LOSARTAN POTASSIUM
     Indication: PRODUCT USED FOR UNKNOWN INDICATION
     Dosage: UNK
     Route: 065
  7. JAKAFI [Suspect]
     Active Substance: RUXOLITINIB
     Dosage: 5 MG, QAM / 10 MG, QPM
  8. MELATONIN [Concomitant]
     Active Substance: MELATONIN
     Indication: PRODUCT USED FOR UNKNOWN INDICATION
     Dosage: UNK
     Route: 065
  9. RESTASIS [Concomitant]
     Active Substance: CYCLOSPORINE
     Indication: PRODUCT USED FOR UNKNOWN INDICATION
     Dosage: UNK
     Route: 065
  10. ALLEGRA [Concomitant]
     Active Substance: FEXOFENADINE HYDROCHLORIDE
     Indication: PRODUCT USED FOR UNKNOWN INDICATION
     Dosage: UNK, PRN
     Route: 065
  11. JAKAFI [Suspect]
     Active Substance: RUXOLITINIB
     Indication: MYELOFIBROSIS
     Dosage: 5 MG, BID
     Route: 048
     Dates: start: 2017
  12. JAKAFI [Suspect]
     Active Substance: RUXOLITINIB
     Dosage: 5 MG, QAM / 10 MG, QPM
     Route: 048
  13. JAKAFI [Suspect]
     Active Substance: RUXOLITINIB
     Dosage: 5 MG, BID
     Route: 048
  14. JAKAFI [Suspect]
     Active Substance: RUXOLITINIB
     Dosage: 5 MG, BID
     Route: 048
     Dates: start: 2017
  15. WARFARIN [Concomitant]
     Active Substance: WARFARIN
     Indication: PRODUCT USED FOR UNKNOWN INDICATION
     Route: 065
  16. TYLENOL [Concomitant]
     Active Substance: ACETAMINOPHEN
     Indication: PRODUCT USED FOR UNKNOWN INDICATION
     Dosage: UNK, PRN
     Route: 065
  17. SALONPAS                           /00735901/ [Concomitant]
     Active Substance: MENTHOL\METHYL SALICYLATE
     Indication: PRODUCT USED FOR UNKNOWN INDICATION
     Dosage: UNK
     Route: 065
  18. AMLODIPINE [Concomitant]
     Active Substance: AMLODIPINE BESYLATE
     Indication: PRODUCT USED FOR UNKNOWN INDICATION
     Dosage: UNK
     Route: 065
  19. JAKAFI [Suspect]
     Active Substance: RUXOLITINIB
     Dosage: UNK
     Route: 065
     Dates: start: 20190219, end: 20190305
  20. CALCIUM [Concomitant]
     Active Substance: CALCIUM
     Indication: PRODUCT USED FOR UNKNOWN INDICATION
     Dosage: UNK
     Route: 065
  21. ASPIRIN                            /00002701/ [Concomitant]
     Active Substance: ASPIRIN
     Indication: PRODUCT USED FOR UNKNOWN INDICATION
     Dosage: UNK
     Route: 065
  22. JAKAFI [Suspect]
     Active Substance: RUXOLITINIB
     Dosage: 5 MG, BID
     Route: 065
  23. ZYRTEC [Concomitant]
     Active Substance: CETIRIZINE HYDROCHLORIDE
     Indication: SEASONAL ALLERGY
     Dosage: PRN
     Route: 065
  24. FLUTICASONE. [Concomitant]
     Active Substance: FLUTICASONE
     Indication: PRODUCT USED FOR UNKNOWN INDICATION
     Dosage: UNK
     Route: 065

REACTIONS (36)
  - Myalgia [Unknown]
  - Basophil percentage increased [Unknown]
  - Abdominal distension [Recovering/Resolving]
  - Arthritis [Unknown]
  - Weight increased [Unknown]
  - Post herpetic neuralgia [Unknown]
  - Blood count abnormal [Unknown]
  - Gait disturbance [Unknown]
  - Dental caries [Unknown]
  - Night sweats [Unknown]
  - Asthenia [Unknown]
  - Limb discomfort [Unknown]
  - Fibrosis [Unknown]
  - Blood cholesterol increased [Unknown]
  - Pruritus [Unknown]
  - Tooth disorder [Unknown]
  - Sleep disorder [Recovering/Resolving]
  - Asthma [Unknown]
  - Bone pain [Unknown]
  - Dyspnoea [Recovering/Resolving]
  - Sinusitis [Unknown]
  - Haemoglobin decreased [Unknown]
  - Fatigue [Unknown]
  - Inguinal hernia [Unknown]
  - Blood triglycerides increased [Unknown]
  - Device breakage [Unknown]
  - Fungal skin infection [Unknown]
  - Blood glucose increased [Unknown]
  - Arthralgia [Recovering/Resolving]
  - Herpes zoster [Recovering/Resolving]
  - Candida infection [Recovered/Resolved]
  - Musculoskeletal discomfort [Unknown]
  - Dry mouth [Unknown]
  - Blood pressure increased [Unknown]
  - Frustration tolerance decreased [Unknown]
  - Abdominal hernia [Unknown]

NARRATIVE: CASE EVENT DATE: 201806
